FAERS Safety Report 10087905 (Version 2)
Quarter: 2014Q2

REPORT INFORMATION
  Report Type: Spontaneous
  Country: US (occurrence: US)
  Receive Date: 20140418
  Receipt Date: 20140418
  Transmission Date: 20141212
  Serious: No
  Sender: FDA-Public Use
  Company Number: US-PURDUE-USA-2014-0110411

PATIENT
  Sex: Male

DRUGS (1)
  1. OXYCONTIN (NDA 22-272) [Suspect]
     Indication: PAIN
     Dosage: 10 MG, BID
     Route: 048
     Dates: start: 20140114, end: 20140114

REACTIONS (5)
  - Pain [Not Recovered/Not Resolved]
  - Intentional product misuse [Not Recovered/Not Resolved]
  - Drug ineffective [Not Recovered/Not Resolved]
  - Product colour issue [Not Recovered/Not Resolved]
  - Product shape issue [Not Recovered/Not Resolved]
